FAERS Safety Report 4312138-8 (Version None)
Quarter: 2004Q1

REPORT INFORMATION
  Report Type: 
  Country: None (occurrence: None)
  Receive Date: 20040305
  Receipt Date: 20040223
  Transmission Date: 20041129
  Serious: Yes (Hospitalization)
  Sender: FDA-Public Use
  Company Number: BE-BRISTOL-MYERS SQUIBB COMPANY-12520052

PATIENT
  Age: 40 Year
  Sex: Female
  Weight: 52 kg

DRUGS (3)
  1. ZERIT [Suspect]
  2. VIREAD [Suspect]
  3. ZIAGEN [Suspect]

REACTIONS (13)
  - BLOOD AMYLASE INCREASED [None]
  - CERVICAL DYSPLASIA [None]
  - CYST [None]
  - DIARRHOEA [None]
  - HEPATITIS TOXIC [None]
  - ILEUS PARALYTIC [None]
  - LIPASE INCREASED [None]
  - NAUSEA [None]
  - OVARIAN CYST [None]
  - PANCREATIC DISORDER [None]
  - SCAN ABDOMEN ABNORMAL [None]
  - SINUS BRADYCARDIA [None]
  - VOMITING [None]
